FAERS Safety Report 24608574 (Version 2)
Quarter: 2024Q4

REPORT INFORMATION
  Report Type: Spontaneous
  Country: US (occurrence: US)
  Receive Date: 20241112
  Receipt Date: 20241112
  Transmission Date: 20250114
  Serious: Yes (Other)
  Sender: AMGEN
  Company Number: US-AMGEN-USASP2024220499

PATIENT
  Age: 34 Year
  Sex: Female

DRUGS (2)
  1. RITUXIMAB [Suspect]
     Active Substance: RITUXIMAB
     Indication: Multiple sclerosis
     Dosage: UNK
     Route: 065
  2. PREDNISONE [Suspect]
     Active Substance: PREDNISONE
     Indication: Symmetrical drug-related intertriginous and flexural exanthema
     Dosage: UNK
     Route: 065

REACTIONS (4)
  - Hypogammaglobulinaemia [Unknown]
  - Symmetrical drug-related intertriginous and flexural exanthema [Unknown]
  - Upper respiratory tract infection [Unknown]
  - Off label use [Unknown]
